FAERS Safety Report 9773143 (Version 4)
Quarter: 2014Q1

REPORT INFORMATION
  Report Type: Report from Study
  Country: US (occurrence: US)
  Receive Date: 20131219
  Receipt Date: 20140312
  Transmission Date: 20141002
  Serious: Yes (Other)
  Sender: FDA-Public Use
  Company Number: US-TEVA-451356USA

PATIENT
  Age: 27 Year
  Sex: Female

DRUGS (2)
  1. CLARAVIS [Suspect]
     Dosage: 40 MILLIGRAM DAILY; QD ALT BID- AVG DAILY DOSE OF 60 MG
     Route: 048
     Dates: start: 20130418, end: 20131210
  2. TRI-SPRINTEC 28 [Concomitant]
     Dates: start: 20130312, end: 20131213

REACTIONS (1)
  - Unintended pregnancy [Recovered/Resolved]
